FAERS Safety Report 18574973 (Version 4)
Quarter: 2022Q2

REPORT INFORMATION
  Report Type: Spontaneous
  Country: CA (occurrence: CA)
  Receive Date: 20201203
  Receipt Date: 20220607
  Transmission Date: 20220721
  Serious: Yes (Other)
  Sender: FDA-Public Use
  Company Number: CA-PFIZER INC-2019407916

PATIENT
  Age: 45 Year
  Sex: Female

DRUGS (9)
  1. IBRANCE [Suspect]
     Active Substance: PALBOCICLIB
     Indication: Breast cancer metastatic
     Dosage: 125 MG, CYCLIC (DAILY 21 DAYS ON OUT OF 28 DAYS)
     Route: 048
     Dates: start: 20191031
  2. LETROZOLE [Concomitant]
     Active Substance: LETROZOLE
     Dosage: UNK
     Dates: start: 20190918
  3. ZOMETA [Concomitant]
     Active Substance: ZOLEDRONIC ACID
     Dosage: 4 MG, MONTHLY
     Route: 042
     Dates: start: 20190805
  4. ZOMETA [Concomitant]
     Active Substance: ZOLEDRONIC ACID
     Dosage: 4 MG, MONTHLY
     Route: 042
     Dates: start: 20210122
  5. CALCIUM CARBONATE\CHOLECALCIFEROL [Concomitant]
     Active Substance: CALCIUM CARBONATE\CHOLECALCIFEROL
     Dosage: UNK
  6. COLACE [Concomitant]
     Active Substance: DOCUSATE SODIUM
     Dosage: UNK
  7. NICODERM CQ [Concomitant]
     Active Substance: NICOTINE
     Dosage: 14 MG, WEEKLY
     Route: 062
  8. NICODERM CQ [Concomitant]
     Active Substance: NICOTINE
     Dosage: 7 MG, WEEKLY
     Route: 062
  9. ATIVAN [Concomitant]
     Active Substance: LORAZEPAM
     Dosage: 0.5 UNK, 2X/DAY (AS NEEDED)

REACTIONS (16)
  - COVID-19 [Not Recovered/Not Resolved]
  - Neutrophil count decreased [Not Recovered/Not Resolved]
  - Neutropenia [Unknown]
  - Constipation [Not Recovered/Not Resolved]
  - White blood cell count decreased [Not Recovered/Not Resolved]
  - Mean cell volume increased [Not Recovered/Not Resolved]
  - Alanine aminotransferase increased [Unknown]
  - Pain in extremity [Unknown]
  - Nasal congestion [Unknown]
  - Anosmia [Unknown]
  - Cough [Unknown]
  - Headache [Unknown]
  - Fatigue [Unknown]
  - Acne [Unknown]
  - Rosacea [Unknown]
  - Bone lesion [Unknown]

NARRATIVE: CASE EVENT DATE: 20200121
